FAERS Safety Report 4851944-8 (Version None)
Quarter: 2005Q4

REPORT INFORMATION
  Report Type: 
  Country: None (occurrence: None)
  Receive Date: 20051209
  Receipt Date: 20051128
  Transmission Date: 20060501
  Serious: Yes (Other)
  Sender: FDA-Public Use
  Company Number: 2005AP000967

PATIENT
  Age: 54 Year
  Sex: Male

DRUGS (2)
  1. RANITIDINE HYDROCHLORIDE [Suspect]
     Indication: GASTRIC PH DECREASED
     Dosage: 150 MG; BID  PO
     Route: 048
     Dates: start: 20051029, end: 20051031
  2. DICLOFENAC (DICLOFENAC) [Suspect]
     Dosage: 50 MG; TID    PO
     Route: 048
     Dates: start: 20051029, end: 20051031

REACTIONS (1)
  - APHTHOUS STOMATITIS [None]
